FAERS Safety Report 24442217 (Version 2)
Quarter: 2024Q4

REPORT INFORMATION
  Report Type: Report from Study
  Country: US (occurrence: US)
  Receive Date: 20241016
  Receipt Date: 20241017
  Transmission Date: 20250115
  Serious: No
  Sender: ROCHE
  Company Number: US-ROCHE-3534892

PATIENT
  Age: 22 Year
  Sex: Male
  Weight: 129.5 kg

DRUGS (2)
  1. HEMLIBRA [Suspect]
     Active Substance: EMICIZUMAB-KXWH
     Indication: Factor VIII deficiency
     Dosage: 6 MG/KG
     Route: 058
     Dates: start: 20220201
  2. HEMLIBRA [Suspect]
     Active Substance: EMICIZUMAB-KXWH
     Indication: Coagulopathy
     Dosage: LOADING DOSE 3RNG/KG OR 4 OF 105 MG VIALS GIVE WEEKLY (TOTAL 20 MG WEEKLY) X 4 THEN DOSING OF 2 OF 1
     Route: 058

REACTIONS (2)
  - Off label use [Unknown]
  - No adverse event [Unknown]
